FAERS Safety Report 12075631 (Version 10)
Quarter: 2017Q3

REPORT INFORMATION
  Report Type: Report from Study
  Country: JP (occurrence: JP)
  Receive Date: 20160213
  Receipt Date: 20170824
  Transmission Date: 20171127
  Serious: Yes (Death, Hospitalization, Other)
  Sender: FDA-Public Use
  Company Number: JP-BRISTOL-MYERS SQUIBB COMPANY-BMS-2016-010322

PATIENT
  Age: 67 Year
  Sex: Male

DRUGS (5)
  1. DEXAMETHASONE. [Suspect]
     Active Substance: DEXAMETHASONE
     Indication: PRODUCT USED FOR UNKNOWN INDICATION
     Dosage: 8 MG, QD
     Route: 048
     Dates: start: 201601, end: 20160126
  2. DEXAMETHASONE. [Suspect]
     Active Substance: DEXAMETHASONE
     Indication: PRODUCT USED FOR UNKNOWN INDICATION
     Dosage: 6 MG, QD
     Route: 048
     Dates: start: 20160127, end: 20160203
  3. DEXAMETHASONE. [Suspect]
     Active Substance: DEXAMETHASONE
     Indication: PRODUCT USED FOR UNKNOWN INDICATION
     Dosage: 16 MG, QD
     Route: 048
     Dates: start: 20151224, end: 201601
  4. NIVOLUMAB [Suspect]
     Active Substance: NIVOLUMAB
     Indication: MALIGNANT MELANOMA
     Dosage: 2 MG/KG, Q3WK
     Route: 041
     Dates: start: 20160126, end: 20160126
  5. ZYPREXA [Concomitant]
     Active Substance: OLANZAPINE
     Indication: PRODUCT USED FOR UNKNOWN INDICATION
     Route: 065

REACTIONS (11)
  - Blood alkaline phosphatase increased [Not Recovered/Not Resolved]
  - Pneumocystis jirovecii pneumonia [Fatal]
  - Alanine aminotransferase increased [Not Recovered/Not Resolved]
  - Cerebral ventricular rupture [Unknown]
  - Disseminated intravascular coagulation [Fatal]
  - Gamma-glutamyltransferase increased [Not Recovered/Not Resolved]
  - Platelet transfusion [Fatal]
  - Intracranial tumour haemorrhage [Fatal]
  - Intra-abdominal haemorrhage [Unknown]
  - Cytomegalovirus test positive [Unknown]
  - Aspartate aminotransferase increased [Not Recovered/Not Resolved]

NARRATIVE: CASE EVENT DATE: 20160204
